FAERS Safety Report 8477448-1 (Version None)
Quarter: 2012Q2

REPORT INFORMATION
  Report Type: 
  Country: None (occurrence: None)
  Receive Date: 20120629
  Receipt Date: 20120626
  Transmission Date: 20120825
  Serious: Yes (Hospitalization)
  Sender: FDA-Public Use
  Company Number: PHHO2009DE10642

PATIENT
  Sex: Female
  Weight: 61 kg

DRUGS (9)
  1. TRAMADOL HYDROCHLORIDE [Concomitant]
     Indication: BURSITIS
     Dosage: UNK
     Dates: start: 20090728, end: 20090803
  2. EVEROLIMUS [Suspect]
     Dosage: 3 MG, BID
     Route: 048
     Dates: start: 20090812, end: 20090819
  3. EVEROLIMUS [Suspect]
     Dosage: 2.75 MG, BID
     Route: 048
     Dates: start: 20090820
  4. DICLOFENAC SODIUM [Suspect]
     Indication: BURSITIS
     Dosage: UNK
     Dates: start: 20090728
  5. EVEROLIMUS [Suspect]
     Indication: LIVER TRANSPLANT
     Dosage: UNK
     Route: 048
     Dates: start: 20080828
  6. EVEROLIMUS [Suspect]
     Dosage: 2.5 MG, BID
     Route: 048
     Dates: start: 20090709, end: 20090803
  7. EVEROLIMUS [Suspect]
     Dosage: 2.5/2.75MG
     Route: 048
     Dates: start: 20090804
  8. EVEROLIMUS [Suspect]
     Dosage: 2.75 MG, BID
     Route: 048
     Dates: start: 20090805, end: 20090811
  9. NOVALGIN [Concomitant]
     Indication: BURSITIS
     Dosage: UNK
     Dates: start: 20090728, end: 20090802

REACTIONS (4)
  - LIVER TRANSPLANT REJECTION [None]
  - BILE DUCT STENOSIS [None]
  - IMMUNOSUPPRESSANT DRUG LEVEL DECREASED [None]
  - HEPATIC ENZYME INCREASED [None]
